FAERS Safety Report 7256671-8 (Version None)
Quarter: 2011Q1

REPORT INFORMATION
  Report Type: 
  Country: None (occurrence: None)
  Receive Date: 20110129
  Receipt Date: 20100809
  Transmission Date: 20110831
  Serious: No
  Sender: FDA-Public Use
  Company Number: US-ABBOTT-10P-163-0663109-00

PATIENT
  Age: 45 Year
  Sex: Male

DRUGS (8)
  1. ALLOPURINOL [Concomitant]
     Indication: GOUT
  2. HUMIRA [Suspect]
     Dosage: 80 MG LOADING DOSE
  3. HUMIRA [Suspect]
     Indication: CROHN'S DISEASE
     Dosage: 160 MG LOADING DOSE
     Dates: start: 20100720
  4. HUMIRA [Suspect]
  5. VALIUM [Concomitant]
     Indication: AGITATION
     Dosage: TWICE
  6. SANDOSTATIN [Concomitant]
     Indication: VIPOMA
  7. COUMADIN [Concomitant]
     Indication: THROMBOSIS
     Dosage: CHANGES EVERY WEEK, 25 MG RIGHT NOW
  8. PRILOSEC [Concomitant]
     Indication: GASTROOESOPHAGEAL REFLUX DISEASE

REACTIONS (1)
  - AGITATION [None]
